FAERS Safety Report 21593807 (Version 2)
Quarter: 2023Q1

REPORT INFORMATION
  Report Type: Report from Study
  Country: US (occurrence: US)
  Receive Date: 20221115
  Receipt Date: 20230110
  Transmission Date: 20230418
  Serious: Yes (Other)
  Sender: FDA-Public Use
  Company Number: US-ABBVIE-4198794

PATIENT
  Age: 52 Year
  Sex: Male

DRUGS (1)
  1. RINVOQ [Suspect]
     Active Substance: UPADACITINIB
     Indication: Psoriatic arthropathy
     Route: 048
     Dates: start: 20220501

REACTIONS (3)
  - Joint arthroplasty [Recovering/Resolving]
  - Tenonectomy [Recovering/Resolving]
  - Osteotomy [Recovering/Resolving]

NARRATIVE: CASE EVENT DATE: 20221101
